FAERS Safety Report 6644716-5 (Version None)
Quarter: 2010Q1

REPORT INFORMATION
  Report Type: 
  Country: None (occurrence: None)
  Receive Date: 20100317
  Receipt Date: 20100301
  Transmission Date: 20100710
  Serious: Yes (Hospitalization)
  Sender: FDA-Public Use
  Company Number: 2010SP005278

PATIENT
  Age: 47 Year
  Sex: Female

DRUGS (14)
  1. MIRTAZAPINE [Suspect]
     Indication: DEPRESSION
     Dosage: 15 MG; H; PO; 15 MG;QD; PO;  30 MG;QD; PO
     Route: 048
     Dates: end: 20100114
  2. MIRTAZAPINE [Suspect]
     Indication: DEPRESSION
     Dosage: 15 MG; H; PO; 15 MG;QD; PO;  30 MG;QD; PO
     Route: 048
     Dates: start: 20100115, end: 20100118
  3. MIRTAZAPINE [Suspect]
     Indication: DEPRESSION
     Dosage: 15 MG; H; PO; 15 MG;QD; PO;  30 MG;QD; PO
     Route: 048
     Dates: start: 20100119
  4. FLUVOXAMINE MALEATE [Suspect]
     Indication: DRUG USE FOR UNKNOWN INDICATION
     Dosage: 50 MG; PO; 100 MG; PO; 75 MG; PO
     Route: 048
     Dates: end: 20100114
  5. FLUVOXAMINE MALEATE [Suspect]
     Indication: DRUG USE FOR UNKNOWN INDICATION
     Dosage: 50 MG; PO; 100 MG; PO; 75 MG; PO
     Route: 048
     Dates: start: 20100115, end: 20100118
  6. FLUVOXAMINE MALEATE [Suspect]
     Indication: DRUG USE FOR UNKNOWN INDICATION
     Dosage: 50 MG; PO; 100 MG; PO; 75 MG; PO
     Route: 048
     Dates: start: 20100119
  7. BIOFERMIN [Concomitant]
  8. TRANCOLON [Concomitant]
  9. EPINASTINE [Concomitant]
  10. HALCION [Concomitant]
  11. ROHYPNOL [Concomitant]
  12. ZOPICLONE [Concomitant]
  13. ETIZOLAM [Concomitant]
  14. SULTANOL (SALBUTAMOL) [Suspect]
     Dosage: PRN, INH
     Route: 055

REACTIONS (3)
  - PALPITATIONS [None]
  - STRESS [None]
  - TACHYCARDIA [None]
